FAERS Safety Report 20345346 (Version 1)
Quarter: 2022Q1

REPORT INFORMATION
  Report Type: Spontaneous
  Country: FR (occurrence: FR)
  Receive Date: 20220118
  Receipt Date: 20220118
  Transmission Date: 20220423
  Serious: Yes (Other)
  Sender: FDA-Public Use
  Company Number: FR-OHRE-2021000461

PATIENT
  Sex: Male
  Weight: .75 kg

DRUGS (4)
  1. CASPOFUNGIN [Suspect]
     Active Substance: CASPOFUNGIN
     Indication: Neonatal candida infection
     Dosage: 25 MILLIGRAM/SQ. METER, QD, FROM D15 TO D34
     Route: 065
  2. FLUCONAZOLE [Concomitant]
     Active Substance: FLUCONAZOLE
     Indication: Neonatal candida infection
     Dosage: 6 MILLIGRAM/KILOGRAM, QD, FROM D5 TO D19
     Route: 065
  3. FLUCONAZOLE [Concomitant]
     Active Substance: FLUCONAZOLE
     Dosage: 10 MILLIGRAM/KILOGRAM, QD, FROM D23 TO D26
     Route: 065
  4. FLUCONAZOLE [Concomitant]
     Active Substance: FLUCONAZOLE
     Dosage: 8.5 MILLIGRAM/KILOGRAM, QD, FROM D34 TO D36
     Route: 065

REACTIONS (3)
  - Product use issue [Unknown]
  - Hepatic enzyme increased [Unknown]
  - Overdose [Unknown]
